FAERS Safety Report 19890399 (Version 2)
Quarter: 2022Q2

REPORT INFORMATION
  Report Type: Report from Study
  Country: ES (occurrence: ES)
  Receive Date: 20210928
  Receipt Date: 20220421
  Transmission Date: 20220720
  Serious: No
  Sender: FDA-Public Use
  Company Number: ES-SA-2021SA200211

PATIENT
  Age: 70 Year
  Sex: Female

DRUGS (4)
  1. PREGABALIN [Interacting]
     Active Substance: PREGABALIN
     Indication: Tremor
     Dosage: UNK
  2. PREGABALIN [Interacting]
     Active Substance: PREGABALIN
     Indication: Orthostatic tremor
  3. PERAMPANEL [Interacting]
     Active Substance: PERAMPANEL
     Indication: Orthostatic tremor
     Dosage: 2 MG, 1X/DAY (QD)
     Route: 065
  4. PERAMPANEL [Interacting]
     Active Substance: PERAMPANEL
     Dosage: 4 MG, 1X/DAY

REACTIONS (2)
  - Drug interaction [Unknown]
  - Dizziness [Unknown]
